FAERS Safety Report 9692678 (Version 1)
Quarter: 2013Q4

REPORT INFORMATION
  Report Type: Report from Study
  Country: US (occurrence: US)
  Receive Date: 20131118
  Receipt Date: 20131118
  Transmission Date: 20140711
  Serious: Yes (Other)
  Sender: FDA-Public Use
  Company Number: US-BAYER-2013-137183

PATIENT
  Sex: 0

DRUGS (2)
  1. SORAFENIB (RAF KINASE INHIBITOR) [Suspect]
     Indication: HORMONE-REFRACTORY PROSTATE CANCER
     Dosage: 400 MG, BID
     Route: 048
  2. PREDNISONE [Concomitant]
     Dosage: 5 MG, BID

REACTIONS (1)
  - Palmar-plantar erythrodysaesthesia syndrome [Recovered/Resolved]
